FAERS Safety Report 7451501-3 (Version None)
Quarter: 2011Q2

REPORT INFORMATION
  Report Type: 
  Country: None (occurrence: None)
  Receive Date: 20110425
  Receipt Date: 20110412
  Transmission Date: 20111010
  Serious: Yes (Other)
  Sender: FDA-Public Use
  Company Number: 2011SP016389

PATIENT
  Sex: Female

DRUGS (1)
  1. NASONEX [Suspect]
     Indication: NASOPHARYNGITIS
     Dosage: NAS
     Dates: end: 20110317

REACTIONS (5)
  - DYSARTHRIA [None]
  - EYE DISORDER [None]
  - PHARYNGEAL OEDEMA [None]
  - SWOLLEN TONGUE [None]
  - AGEUSIA [None]
